FAERS Safety Report 25073127 (Version 1)
Quarter: 2025Q1

REPORT INFORMATION
  Report Type: Report from Study
  Country: IN (occurrence: IN)
  Receive Date: 20250313
  Receipt Date: 20250313
  Transmission Date: 20250409
  Serious: Yes (Death)
  Sender: ROCHE
  Company Number: IN-ROCHE-10000178994

PATIENT
  Age: 58 Year
  Sex: Female

DRUGS (2)
  1. TECENTRIQ [Suspect]
     Active Substance: ATEZOLIZUMAB
     Indication: Hepatocellular carcinoma
     Route: 042
     Dates: start: 20240924
  2. BEVACIZUMAB [Suspect]
     Active Substance: BEVACIZUMAB
     Indication: Hepatocellular carcinoma
     Route: 065

REACTIONS (8)
  - Hepatic lesion [Unknown]
  - Portal vein thrombosis [Unknown]
  - Splenomegaly [Unknown]
  - Thyroid cyst [Unknown]
  - Thyroid mass [Unknown]
  - Ascites [Unknown]
  - Hepatomegaly [Unknown]
  - Death [Fatal]

NARRATIVE: CASE EVENT DATE: 20241207
